FAERS Safety Report 8434958-0 (Version None)
Quarter: 2012Q2

REPORT INFORMATION
  Report Type: 
  Country: None (occurrence: None)
  Receive Date: 20120614
  Receipt Date: 20120531
  Transmission Date: 20120825
  Serious: Yes (Other)
  Sender: FDA-Public Use
  Company Number: TR-RANBAXY-2012RR-57174

PATIENT
  Age: 1 Day
  Sex: Male
  Weight: 3.2 kg

DRUGS (1)
  1. FENOFIBRATE [Suspect]
     Indication: MATERNAL EXPOSURE TIMING UNSPECIFIED
     Dosage: 267 MG/ DAY
     Route: 064

REACTIONS (3)
  - FOETAL EXPOSURE DURING PREGNANCY [None]
  - NORMAL NEWBORN [None]
  - FOETAL DISTRESS SYNDROME [None]
